FAERS Safety Report 7179111-6 (Version None)
Quarter: 2010Q4

REPORT INFORMATION
  Report Type: 
  Country: None (occurrence: None)
  Receive Date: 20101217
  Receipt Date: 20101217
  Transmission Date: 20110411
  Serious: Yes (Other)
  Sender: FDA-Public Use
  Company Number: None

PATIENT
  Age: 81 Year
  Sex: Female

DRUGS (8)
  1. ARANESP [Suspect]
     Indication: ANAEMIA
     Dosage: 60MCG UNDER THE SKIN EVERY 2 WEEKS
     Route: 058
     Dates: start: 20100922
  2. NORVASC [Concomitant]
  3. LASIX [Concomitant]
  4. XIBROM [Concomitant]
  5. LANTUS [Concomitant]
  6. PLAVIX [Concomitant]
  7. ORAP [Concomitant]
  8. CRESTOR [Concomitant]

REACTIONS (2)
  - CHEST PAIN [None]
  - TREMOR [None]
